FAERS Safety Report 10605005 (Version 1)
Quarter: 2014Q4

REPORT INFORMATION
  Report Type: Spontaneous
  Country: US (occurrence: US)
  Receive Date: 20141124
  Receipt Date: 20141124
  Transmission Date: 20150529
  Serious: No
  Sender: FDA-Public Use
  Company Number: US-SA-2014SA104769

PATIENT

DRUGS (1)
  1. RENVELA [Suspect]
     Active Substance: SEVELAMER CARBONATE
     Indication: PRODUCT USED FOR UNKNOWN INDICATION
     Dosage: RENVELA ORAL TAB 800MG. 4 TAB WITH EACH MEAL, 2X A DAY. 3 TAB WITH SNACK , 1-3X A DAY.
     Route: 048

REACTIONS (1)
  - Diarrhoea [Not Recovered/Not Resolved]
